FAERS Safety Report 4901281-8 (Version None)
Quarter: 2006Q1

REPORT INFORMATION
  Report Type: 
  Country: None (occurrence: None)
  Receive Date: 20060206
  Receipt Date: 20060126
  Transmission Date: 20060701
  Serious: Yes (Hospitalization)
  Sender: FDA-Public Use
  Company Number: PHRM2006FR00644

PATIENT
  Age: 78 Year
  Sex: Female

DRUGS (7)
  1. COTAREG [Suspect]
     Indication: HYPERTENSION
     Dosage: 1 DF, QD
     Route: 048
     Dates: end: 20051206
  2. LASIX [Suspect]
     Indication: HYPERTENSION
     Dosage: 1 DF, QD
     Route: 048
     Dates: end: 20051206
  3. LASIX [Suspect]
     Dates: start: 20051214
  4. TENSTATEN [Suspect]
     Indication: HYPERTENSION
     Dosage: 50 MG, QD
     Route: 048
     Dates: end: 20051206
  5. VEINAMITOL [Concomitant]
     Dosage: 1 DF, QD
     Route: 048
     Dates: end: 20051206
  6. KARDEGIC [Concomitant]
     Dosage: 75 MG/DAY
     Route: 048
     Dates: end: 20051206
  7. ZYRTEC [Concomitant]
     Dosage: 10 MG/DAY
     Route: 048
     Dates: end: 20051206

REACTIONS (13)
  - BLOOD CREATININE INCREASED [None]
  - BLOOD UREA INCREASED [None]
  - DECREASED APPETITE [None]
  - DEHYDRATION [None]
  - DRUG INTERACTION [None]
  - FLUID REPLACEMENT [None]
  - FOOD AVERSION [None]
  - HYPOKALAEMIA [None]
  - HYPONATRAEMIA [None]
  - HYPOTENSION [None]
  - MALAISE [None]
  - METABOLIC ACIDOSIS [None]
  - RENAL FAILURE ACUTE [None]
